FAERS Safety Report 8336531-1 (Version None)
Quarter: 2012Q2

REPORT INFORMATION
  Report Type: 
  Country: None (occurrence: None)
  Receive Date: 20120504
  Receipt Date: 20120424
  Transmission Date: 20120825
  Serious: Yes (Hospitalization)
  Sender: FDA-Public Use
  Company Number: CA-BRISTOL-MYERS SQUIBB COMPANY-16510356

PATIENT
  Age: 84 Year
  Sex: Female

DRUGS (4)
  1. ATENOLOL [Concomitant]
  2. ARAVA [Concomitant]
  3. ORENCIA [Suspect]
     Indication: RHEUMATOID ARTHRITIS
     Dosage: LAST INFUSION ON 28-MAR-2012, INF:49
     Route: 042
     Dates: start: 20070503
  4. PLAQUENIL [Concomitant]

REACTIONS (2)
  - CEREBROVASCULAR ACCIDENT [None]
  - HERPES ZOSTER [None]
